FAERS Safety Report 9520749 (Version 1)
Quarter: 2013Q3

REPORT INFORMATION
  Report Type: Spontaneous
  Country: US (occurrence: None)
  Receive Date: 20130911
  Receipt Date: 20130911
  Transmission Date: 20140515
  Serious: Yes (Hospitalization)
  Sender: FDA-Public Use
  Company Number: None

PATIENT
  Age: 72 Year
  Sex: Male
  Weight: 80.74 kg

DRUGS (1)
  1. LEVOFLOXACIN [Suspect]
     Indication: PHARYNGITIS
     Dosage: 2 MG __ IV
     Route: 048
     Dates: start: 20130711, end: 20130715

REACTIONS (8)
  - Sinus headache [None]
  - Dizziness [None]
  - Balance disorder [None]
  - Fall [None]
  - Atrial fibrillation [None]
  - International normalised ratio increased [None]
  - Haematoma [None]
  - Tremor [None]
